FAERS Safety Report 7137936-7 (Version None)
Quarter: 2010Q4

REPORT INFORMATION
  Report Type: 
  Country: None (occurrence: None)
  Receive Date: 20101118
  Receipt Date: 20101102
  Transmission Date: 20110411
  Serious: Yes (Death, Other)
  Sender: FDA-Public Use
  Company Number: 011708

PATIENT
  Age: 56 Year
  Sex: Female

DRUGS (5)
  1. BUSULFEX [Suspect]
     Indication: BONE MARROW CONDITIONING REGIMEN
     Dosage: 130 MG/M2, INTRAVENOUS
     Route: 042
  2. FLUDARABINE PHOSPHATE [Concomitant]
  3. ATG (ANTILYMPHOCYTE IMMUNOGLOBULIN (HORSE)) [Concomitant]
  4. CYCLOSPORINE [Concomitant]
  5. HEPARIN [Concomitant]

REACTIONS (3)
  - CHRONIC GRAFT VERSUS HOST DISEASE [None]
  - PNEUMONIA [None]
  - RECURRENT CANCER [None]
